FAERS Safety Report 12697842 (Version 1)
Quarter: 2016Q3

REPORT INFORMATION
  Report Type: Spontaneous
  Country: US (occurrence: None)
  Receive Date: 20160829
  Receipt Date: 20160829
  Transmission Date: 20161109
  Serious: Yes (Life-Threatening, Hospitalization)
  Sender: FDA-Public Use
  Company Number: None

PATIENT
  Age: 63 Year
  Sex: Female
  Weight: 63.96 kg

DRUGS (6)
  1. SIMVASTATIN, 80MG MERCK [Suspect]
     Active Substance: SIMVASTATIN
     Indication: BLOOD CHOLESTEROL
     Route: 048
     Dates: start: 20140105, end: 20140402
  2. INSULIN GLARGINE [Concomitant]
     Active Substance: INSULIN GLARGINE
  3. GLIPIZIDE. [Concomitant]
     Active Substance: GLIPIZIDE
  4. MULTIVITAMIN/MINERALS [Concomitant]
  5. ASPIRIN. [Concomitant]
     Active Substance: ASPIRIN
  6. METFORMIN HCL [Concomitant]
     Active Substance: METFORMIN HYDROCHLORIDE

REACTIONS (2)
  - Rhabdomyolysis [None]
  - Therapy change [None]

NARRATIVE: CASE EVENT DATE: 20140502
